FAERS Safety Report 11052784 (Version 1)
Quarter: 2015Q2

REPORT INFORMATION
  Report Type: Spontaneous
  Country: US (occurrence: None)
  Receive Date: 20150420
  Receipt Date: 20150420
  Transmission Date: 20150821
  Serious: Yes (Hospitalization)
  Sender: FDA-Public Use
  Company Number: None

PATIENT
  Age: 77 Year
  Sex: Female
  Weight: 73.2 kg

DRUGS (17)
  1. FESOTERODINE [Concomitant]
     Active Substance: FESOTERODINE
  2. HYDROCODONE/APAP [Concomitant]
     Active Substance: ACETAMINOPHEN\HYDROCODONE
  3. LOPERAMIDE [Concomitant]
     Active Substance: LOPERAMIDE
  4. MECLIZINE [Concomitant]
     Active Substance: MECLIZINE\MECLIZINE HYDROCHLORIDE
  5. TYLENOL [Concomitant]
     Active Substance: ACETAMINOPHEN
  6. METHOTREXATE [Concomitant]
     Active Substance: METHOTREXATE
  7. PANTOPRAZOLE [Concomitant]
     Active Substance: PANTOPRAZOLE SODIUM
  8. POTASSIUM CHLORIDE. [Concomitant]
     Active Substance: POTASSIUM CHLORIDE
  9. SIMVASTATIN. [Concomitant]
     Active Substance: SIMVASTATIN
  10. FOLIC ACID. [Concomitant]
     Active Substance: FOLIC ACID
  11. FUROSEMIDE. [Concomitant]
     Active Substance: FUROSEMIDE
  12. NABUMETONE. [Concomitant]
     Active Substance: NABUMETONE
  13. AMLODIPINE [Concomitant]
     Active Substance: AMLODIPINE BESYLATE
  14. PROPANOLOL [Concomitant]
     Active Substance: PROPRANOLOL HYDROCHLORIDE
  15. CLONIDINE. [Concomitant]
     Active Substance: CLONIDINE
  16. PAROXETINE [Concomitant]
     Active Substance: PAROXETINE\PAROXETINE HYDROCHLORIDE
  17. PRADAXA [Suspect]
     Active Substance: DABIGATRAN ETEXILATE MESYLATE
     Indication: ATRIAL FIBRILLATION
     Dosage: 1 CAPSULE
     Dates: start: 20140615

REACTIONS (3)
  - Haemorrhage intracranial [None]
  - Brain contusion [None]
  - Fall [None]

NARRATIVE: CASE EVENT DATE: 20140615
